FAERS Safety Report 8396583-X (Version None)
Quarter: 2012Q1

REPORT INFORMATION
  Report Type: 
  Country: None (occurrence: None)
  Receive Date: 20120323
  Receipt Date: 20110331
  Transmission Date: 20120608
  Serious: Yes (Disabling)
  Sender: FDA-Public Use
  Company Number: 163-21880-11040089

PATIENT
  Age: 70 Year
  Sex: Male

DRUGS (4)
  1. PREVACID [Concomitant]
  2. REVLIMID [Suspect]
     Indication: MULTIPLE MYELOMA
     Dosage: 25 MG, 1 IN 1 D, PO
     Route: 048
     Dates: start: 20100101
  3. ATENOLOL [Concomitant]
  4. LIPITOR [Concomitant]

REACTIONS (2)
  - NEUTROPENIA [None]
  - INFECTION [None]
